FAERS Safety Report 12771124 (Version 7)
Quarter: 2017Q1

REPORT INFORMATION
  Report Type: Report from Study
  Country: BE (occurrence: BE)
  Receive Date: 20160922
  Receipt Date: 20170316
  Transmission Date: 20170428
  Serious: Yes (Hospitalization)
  Sender: FDA-Public Use
  Company Number: PHHO2016BE013483

PATIENT
  Age: 63 Year
  Sex: Female
  Weight: 68.1 kg

DRUGS (25)
  1. DABRAFENIB [Suspect]
     Active Substance: DABRAFENIB
     Dosage: NO TREATMENT
     Route: 048
     Dates: start: 20150204, end: 20150217
  2. DABRAFENIB [Suspect]
     Active Substance: DABRAFENIB
     Dosage: NO TREATMENT
     Route: 048
     Dates: start: 20150805, end: 20150818
  3. TRAMETINIB [Suspect]
     Active Substance: TRAMETINIB
     Dosage: 1.5 MG, QD
     Route: 048
     Dates: start: 20150819, end: 20160907
  4. DABRAFENIB [Suspect]
     Active Substance: DABRAFENIB
     Dosage: NO TREATMENT
     Route: 048
     Dates: start: 20141002, end: 20141014
  5. DABRAFENIB [Suspect]
     Active Substance: DABRAFENIB
     Dosage: NO TREATMENT
     Route: 048
     Dates: start: 20150401, end: 20150414
  6. DABRAFENIB [Suspect]
     Active Substance: DABRAFENIB
     Dosage: 200 MG, QD
     Route: 048
     Dates: start: 20150415, end: 20150804
  7. DABRAFENIB [Suspect]
     Active Substance: DABRAFENIB
     Dosage: NO TREATMENT
     Route: 048
     Dates: start: 20160908, end: 20160910
  8. TRAMETINIB [Suspect]
     Active Substance: TRAMETINIB
     Dosage: NO TREATMENT
     Route: 048
     Dates: start: 20141002, end: 20141014
  9. TRAMETINIB [Suspect]
     Active Substance: TRAMETINIB
     Dosage: 0.5 MG, QD
     Route: 048
     Dates: start: 20141015, end: 20141029
  10. DABRAFENIB [Suspect]
     Active Substance: DABRAFENIB
     Indication: COLORECTAL CANCER
     Dosage: 300 MG, QD
     Route: 048
     Dates: start: 20140220, end: 20141001
  11. DABRAFENIB [Suspect]
     Active Substance: DABRAFENIB
     Dosage: 100 MG, QD
     Route: 048
     Dates: start: 20141015, end: 20141029
  12. DABRAFENIB [Suspect]
     Active Substance: DABRAFENIB
     Dosage: 300 MG, QD
     Route: 048
     Dates: start: 20141030, end: 20150203
  13. TRAMETINIB [Suspect]
     Active Substance: TRAMETINIB
     Indication: COLORECTAL CANCER
     Dosage: 2 MG, QD
     Route: 048
     Dates: start: 20140220, end: 20141001
  14. TRAMETINIB [Suspect]
     Active Substance: TRAMETINIB
     Dosage: 2 MG, QD
     Route: 048
     Dates: start: 20150218, end: 20150331
  15. TRAMETINIB [Suspect]
     Active Substance: TRAMETINIB
     Dosage: 1.5 MG, QD
     Route: 048
     Dates: start: 20150415, end: 20150804
  16. TRAMETINIB [Suspect]
     Active Substance: TRAMETINIB
     Dosage: NO TREATMENT
     Route: 048
     Dates: start: 20160908, end: 20160910
  17. TRAMETINIB [Suspect]
     Active Substance: TRAMETINIB
     Dosage: NO TREATMENT
     Route: 048
     Dates: start: 20150204, end: 20150217
  18. TRAMETINIB [Suspect]
     Active Substance: TRAMETINIB
     Dosage: NO TREATMENT
     Route: 048
     Dates: start: 20150401, end: 20150414
  19. TRAMETINIB [Suspect]
     Active Substance: TRAMETINIB
     Dosage: NO TREATMENT
     Route: 048
     Dates: start: 20150805, end: 20150818
  20. TRAMETINIB [Suspect]
     Active Substance: TRAMETINIB
     Dosage: 2 MG, QD
     Route: 048
     Dates: start: 20141030, end: 20150203
  21. TRAMETINIB [Suspect]
     Active Substance: TRAMETINIB
     Dosage: 1.5 MG, QD
     Route: 048
     Dates: start: 20160911
  22. DABRAFENIB [Suspect]
     Active Substance: DABRAFENIB
     Dosage: 300 MG, UNK
     Route: 048
     Dates: start: 20150218, end: 20150331
  23. DABRAFENIB [Suspect]
     Active Substance: DABRAFENIB
     Dosage: 200 MG, QD
     Route: 048
     Dates: start: 20150819, end: 20160907
  24. DABRAFENIB [Suspect]
     Active Substance: DABRAFENIB
     Dosage: 200 MG, QD
     Route: 048
     Dates: start: 20160911
  25. PANITUMUMAB [Suspect]
     Active Substance: PANITUMUMAB
     Indication: COLORECTAL CANCER
     Dosage: 343.2 MG, UNK
     Route: 041
     Dates: start: 20140220, end: 20140220

REACTIONS (2)
  - Intestinal obstruction [Recovered/Resolved]
  - Small intestinal obstruction [Recovered/Resolved]

NARRATIVE: CASE EVENT DATE: 20160908
